FAERS Safety Report 4764966-2 (Version None)
Quarter: 2005Q3

REPORT INFORMATION
  Report Type: 
  Country: None (occurrence: None)
  Receive Date: 20050909
  Receipt Date: 20050825
  Transmission Date: 20060218
  Serious: Yes (Hospitalization)
  Sender: FDA-Public Use
  Company Number: FR-ROCHE-415653

PATIENT
  Age: 88 Year
  Sex: Female

DRUGS (7)
  1. ROCEPHIN [Suspect]
     Route: 042
     Dates: start: 20050524
  2. BACTRIM [Interacting]
     Route: 042
     Dates: start: 20050524
  3. PREVISCAN [Interacting]
     Indication: PULMONARY EMBOLISM
     Route: 048
     Dates: end: 20050527
  4. MOVICOL [Concomitant]
  5. LORAZEPAM [Concomitant]
  6. PRAVASTATIN [Concomitant]
     Route: 048
  7. LOXEN LP [Concomitant]
     Indication: ESSENTIAL HYPERTENSION
     Route: 048

REACTIONS (10)
  - ANAEMIA [None]
  - BLOOD PRESSURE DECREASED [None]
  - DRUG INTERACTION [None]
  - HYPERKALAEMIA [None]
  - MELAENA [None]
  - PALLOR [None]
  - PROTHROMBIN TIME RATIO DECREASED [None]
  - RECTAL HAEMORRHAGE [None]
  - RECTAL ULCER [None]
  - VOMITING [None]
